FAERS Safety Report 10006942 (Version 2)
Quarter: 2015Q4

REPORT INFORMATION
  Report Type: Spontaneous
  Country: US (occurrence: None)
  Receive Date: 20140311
  Receipt Date: 20151001
  Transmission Date: 20160304
  Serious: Yes (Other)
  Sender: FDA-Public Use
  Company Number: 1713747-2014-99916

PATIENT
  Age: 69 Year
  Sex: Male
  Weight: 120 kg

DRUGS (4)
  1. DELFLEX PD SOLUTIONS 1.5% [Concomitant]
  2. DELFLEX [Suspect]
     Active Substance: CALCIUM CHLORIDE\DEXTROSE MONOHYDRATE\MAGNESIUM CHLORIDE\SODIUM CHLORIDE\SODIUM LACTATE
     Indication: CHRONIC KIDNEY DISEASE
     Dosage: 17L OVERNIGHT CCPD
     Dates: start: 20140108, end: 20140123
  3. LIBERTY CYCLER [Concomitant]
     Active Substance: DEVICE
  4. LIBERTY CYCLER SET [Concomitant]
     Active Substance: DEVICE

REACTIONS (4)
  - Peritoneal cloudy effluent [None]
  - Wound [None]
  - Peritonitis [None]
  - Pseudomonas test positive [None]

NARRATIVE: CASE EVENT DATE: 20140121
